FAERS Safety Report 25330551 (Version 5)
Quarter: 2025Q4

REPORT INFORMATION
  Report Type: Report from Study
  Country: US (occurrence: None)
  Receive Date: 20250519
  Receipt Date: 20251114
  Transmission Date: 20260118
  Serious: Yes (Hospitalization, Other)
  Sender: UCB
  Company Number: US-UCBSA-2025029001

PATIENT
  Age: 37 Year
  Weight: 54 kg

DRUGS (3)
  1. FENFLURAMINE [Suspect]
     Active Substance: FENFLURAMINE
     Indication: Seizure
     Dosage: 2.2 MILLIGRAM PER KILOGRAM PER DAY (TOTAL DOSE OF 44 MILLIGRAM PER DAY)
  2. FENFLURAMINE [Suspect]
     Active Substance: FENFLURAMINE
     Indication: Lennox-Gastaut syndrome
     Dosage: 6 MILLILITER, 2X/DAY (BID)
  3. FENFLURAMINE [Suspect]
     Active Substance: FENFLURAMINE
     Dosage: 6 MILLILITER, 2X/DAY (BID)

REACTIONS (5)
  - Mitral valve incompetence [Not Recovered/Not Resolved]
  - Bronchitis [Recovered/Resolved]
  - Hospitalisation [Not Recovered/Not Resolved]
  - Left ventricular dysfunction [Not Recovered/Not Resolved]
  - Mitral valve prolapse [Not Recovered/Not Resolved]
